FAERS Safety Report 20660962 (Version 10)
Quarter: 2025Q2

REPORT INFORMATION
  Report Type: Report from Study
  Country: US (occurrence: US)
  Receive Date: 20220331
  Receipt Date: 20250606
  Transmission Date: 20250716
  Serious: Yes (Other)
  Sender: TAKEDA
  Company Number: US-TAKEDA-2022TUS021535

PATIENT
  Age: 67 Year
  Sex: Female
  Weight: 101 kg

DRUGS (75)
  1. HUMAN IMMUNOGLOBULIN G\HYALURONIDASE RECOMBINANT HUMAN [Suspect]
     Active Substance: HUMAN IMMUNOGLOBULIN G\HYALURONIDASE (HUMAN RECOMBINANT)
     Indication: Immunodeficiency common variable
     Dosage: 37.5 MILLIGRAM, Q4WEEKS
     Dates: start: 20171108
  2. HUMAN IMMUNOGLOBULIN G\HYALURONIDASE RECOMBINANT HUMAN [Suspect]
     Active Substance: HUMAN IMMUNOGLOBULIN G\HYALURONIDASE (HUMAN RECOMBINANT)
     Indication: Primary immunodeficiency syndrome
     Dosage: 35 GRAM, Q4WEEKS
  3. HUMAN IMMUNOGLOBULIN G\HYALURONIDASE RECOMBINANT HUMAN [Suspect]
     Active Substance: HUMAN IMMUNOGLOBULIN G\HYALURONIDASE (HUMAN RECOMBINANT)
     Dosage: 37.5 MILLIGRAM, Q4WEEKS
     Dates: start: 20171206
  4. HUMAN IMMUNOGLOBULIN G\HYALURONIDASE RECOMBINANT HUMAN [Suspect]
     Active Substance: HUMAN IMMUNOGLOBULIN G\HYALURONIDASE (HUMAN RECOMBINANT)
     Dosage: 37.5 MILLIGRAM, Q4WEEKS
     Dates: start: 20180912
  5. HUMAN IMMUNOGLOBULIN G\HYALURONIDASE RECOMBINANT HUMAN [Suspect]
     Active Substance: HUMAN IMMUNOGLOBULIN G\HYALURONIDASE (HUMAN RECOMBINANT)
     Dosage: 35 GRAM, Q4WEEKS
  6. HUMAN IMMUNOGLOBULIN G\HYALURONIDASE RECOMBINANT HUMAN [Suspect]
     Active Substance: HUMAN IMMUNOGLOBULIN G\HYALURONIDASE (HUMAN RECOMBINANT)
     Dosage: UNK UNK, MONTHLY
  7. ATROVENT HFA [Concomitant]
     Active Substance: IPRATROPIUM BROMIDE
  8. MAGNESIUM [Concomitant]
     Active Substance: MAGNESIUM
  9. KLONOPIN [Concomitant]
     Active Substance: CLONAZEPAM
  10. XOPENEX [Concomitant]
     Active Substance: LEVALBUTEROL HYDROCHLORIDE
  11. BACTRIM [Concomitant]
     Active Substance: SULFAMETHOXAZOLE\TRIMETHOPRIM
  12. CALCIUM CITRATE [Concomitant]
     Active Substance: CALCIUM CITRATE
  13. KEPPRA [Concomitant]
     Active Substance: LEVETIRACETAM
  14. BUDESONIDE [Concomitant]
     Active Substance: BUDESONIDE
  15. ACETAMINOPHEN [Concomitant]
     Active Substance: ACETAMINOPHEN
  16. DIPHENHYDRAMINE [Concomitant]
     Active Substance: DIPHENHYDRAMINE
  17. EPINEPHRINE [Concomitant]
     Active Substance: EPINEPHRINE
  18. SODIUM CHLORIDE [Concomitant]
     Active Substance: SODIUM CHLORIDE
  19. LOSARTAN [Concomitant]
     Active Substance: LOSARTAN
  20. BOTOX [Concomitant]
     Active Substance: ONABOTULINUMTOXINA
  21. DIOVAN [Concomitant]
     Active Substance: VALSARTAN
  22. NORCO [Concomitant]
     Active Substance: ACETAMINOPHEN\HYDROCODONE BITARTRATE
  23. PROTONIX [Concomitant]
     Active Substance: PANTOPRAZOLE SODIUM
  24. ASTEPRO [Concomitant]
     Active Substance: AZELASTINE HYDROCHLORIDE
  25. PATANOL [Concomitant]
     Active Substance: OLOPATADINE HYDROCHLORIDE
  26. TESSALON [Concomitant]
     Active Substance: BENZONATATE
  27. LIPITOR [Concomitant]
     Active Substance: ATORVASTATIN CALCIUM
  28. TRAMADOL [Concomitant]
     Active Substance: TRAMADOL
  29. VITAMIN D3 [Concomitant]
     Active Substance: CHOLECALCIFEROL
  30. ELIGEN B12 [Concomitant]
  31. TRAMADOL HCL [Concomitant]
     Active Substance: TRAMADOL HYDROCHLORIDE
  32. ADVAIR HFA [Concomitant]
     Active Substance: FLUTICASONE PROPIONATE\SALMETEROL XINAFOATE
  33. FERRIC POLYSACCHARIDE COMPLEX [Concomitant]
     Active Substance: FERRIC POLYSACCHARIDE COMPLEX
  34. AMIODARONE [Concomitant]
     Active Substance: AMIODARONE
  35. LATANOPROST [Concomitant]
     Active Substance: LATANOPROST
  36. VITAMIN B2 [Concomitant]
     Active Substance: RIBOFLAVIN
  37. LOSARTAN POTASSIUM [Concomitant]
     Active Substance: LOSARTAN POTASSIUM
  38. CHLORTHALIDONE [Concomitant]
     Active Substance: CHLORTHALIDONE
  39. VIRTUSSIN AC [Concomitant]
     Active Substance: CODEINE PHOSPHATE\GUAIFENESIN
  40. VITAMIN C [Concomitant]
     Active Substance: ASCORBIC ACID
  41. AZELASTINE HYDROCHLORIDE [Concomitant]
     Active Substance: AZELASTINE HYDROCHLORIDE
  42. AZELASTINE [Concomitant]
     Active Substance: AZELASTINE
  43. AMITRIPTYLINE HYDROCHLORIDE [Concomitant]
     Active Substance: AMITRIPTYLINE HYDROCHLORIDE
  44. AMITRIPTYLINE [Concomitant]
     Active Substance: AMITRIPTYLINE
  45. PROAIR HFA [Concomitant]
     Active Substance: ALBUTEROL SULFATE
  46. ZANAFLEX [Concomitant]
     Active Substance: TIZANIDINE HYDROCHLORIDE
  47. TIZANIDINE [Concomitant]
     Active Substance: TIZANIDINE
  48. PLAVIX [Concomitant]
     Active Substance: CLOPIDOGREL BISULFATE
  49. ACETAMINOPHEN\DICHLORALPHENAZONE\ISOMETHEPTENE MUCATE [Concomitant]
     Active Substance: ACETAMINOPHEN\DICHLORALPHENAZONE\ISOMETHEPTENE MUCATE
  50. MUCINEX [Concomitant]
     Active Substance: GUAIFENESIN
  51. ACETAMINOPHEN\CODEINE PHOSPHATE [Concomitant]
     Active Substance: ACETAMINOPHEN\CODEINE PHOSPHATE
  52. ROSUVASTATIN [Concomitant]
     Active Substance: ROSUVASTATIN
  53. ROSUVASTATIN CALCIUM [Concomitant]
     Active Substance: ROSUVASTATIN CALCIUM
  54. PULMICORT TURBUHALER [Concomitant]
     Active Substance: BUDESONIDE
  55. AMMONIUM CHLORIDE\DEXTROMETHORPHAN\SODIUM CITRATE [Concomitant]
     Active Substance: AMMONIUM CHLORIDE\DEXTROMETHORPHAN\SODIUM CITRATE
  56. RIBOFLAVIN [Concomitant]
     Active Substance: RIBOFLAVIN
  57. LIDOCAINE [Concomitant]
     Active Substance: LIDOCAINE
  58. SYSTANE (HYPROMELLOSE 2910 (4000 MPA.S)) [Concomitant]
     Active Substance: HYPROMELLOSE 2910 (4000 MPA.S)
  59. POTASSIUM [Concomitant]
     Active Substance: POTASSIUM
  60. NARATRIPTAN [Concomitant]
     Active Substance: NARATRIPTAN HYDROCHLORIDE
  61. ZINC [Concomitant]
     Active Substance: ZINC
  62. CODEINE [Concomitant]
     Active Substance: CODEINE
  63. ZANAFLEX [Concomitant]
     Active Substance: TIZANIDINE HYDROCHLORIDE
  64. TIZANIDINE HYDROCHLORIDE [Concomitant]
     Active Substance: TIZANIDINE HYDROCHLORIDE
  65. VITAMIN E [Concomitant]
     Active Substance: .ALPHA.-TOCOPHEROL
  66. AMIODARONE HYDROCHLORIDE [Concomitant]
     Active Substance: AMIODARONE HYDROCHLORIDE
  67. POTASSIUM CHLORIDE [Concomitant]
     Active Substance: POTASSIUM CHLORIDE
  68. TRAMADOL [Concomitant]
     Active Substance: TRAMADOL
  69. NARATRIPTAN HYDROCHLORIDE [Concomitant]
     Active Substance: NARATRIPTAN HYDROCHLORIDE
  70. TESSALON [Concomitant]
     Active Substance: BENZONATATE
  71. PATANOL [Concomitant]
     Active Substance: OLOPATADINE HYDROCHLORIDE
  72. BOTOX [Concomitant]
     Active Substance: ONABOTULINUMTOXINA
  73. DIPHENHYDRAMINE HYDROCHLORIDE [Concomitant]
     Active Substance: DIPHENHYDRAMINE HYDROCHLORIDE
  74. AMOXICILLIN [Concomitant]
     Active Substance: AMOXICILLIN
  75. BENZONATATE [Concomitant]
     Active Substance: BENZONATATE

REACTIONS (35)
  - Cerebral haemorrhage [Unknown]
  - Pneumonia [Unknown]
  - Cataract [Unknown]
  - Ear infection [Unknown]
  - Upper limb fracture [Unknown]
  - Sinusitis [Not Recovered/Not Resolved]
  - Contusion [Recovered/Resolved]
  - Arthritis [Unknown]
  - COVID-19 [Recovered/Resolved]
  - Eye disorder [Unknown]
  - Skin atrophy [Unknown]
  - Skin laceration [Unknown]
  - Peripheral swelling [Unknown]
  - Bursitis [Unknown]
  - Seasonal allergy [Unknown]
  - Pain [Unknown]
  - Accident [Unknown]
  - Nasal polyps [Unknown]
  - Dust allergy [Unknown]
  - Product packaging quantity issue [Unknown]
  - Incorrect dose administered [Unknown]
  - Infusion site discharge [Unknown]
  - Asthma [Unknown]
  - Migraine [Unknown]
  - Dyspnoea [Recovered/Resolved]
  - Headache [Unknown]
  - Scratch [Unknown]
  - Inappropriate schedule of product administration [Unknown]
  - Joint injury [Unknown]
  - Road traffic accident [Recovered/Resolved]
  - Fall [Unknown]
  - Nasopharyngitis [Recovered/Resolved]
  - Glucose tolerance impaired [Unknown]
  - Heart rate increased [Recovered/Resolved]
  - Blood pressure increased [Recovered/Resolved]

NARRATIVE: CASE EVENT DATE: 20200625
